FAERS Safety Report 13819696 (Version 2)
Quarter: 2018Q1

REPORT INFORMATION
  Report Type: Spontaneous
  Country: US (occurrence: US)
  Receive Date: 20170731
  Receipt Date: 20180125
  Transmission Date: 20180508
  Serious: Yes (Other)
  Sender: FDA-Public Use
  Company Number: US-ASTRAZENECA-2017SE75742

PATIENT
  Age: 865 Month
  Sex: Female
  Weight: 52.2 kg

DRUGS (7)
  1. PULMICORT FLEXHALER [Suspect]
     Active Substance: BUDESONIDE
     Indication: ASTHMA
     Route: 055
     Dates: start: 201703
  2. CLARITIN [Concomitant]
     Active Substance: LORATADINE
  3. ANORO ELLIPTA [Suspect]
     Active Substance: UMECLIDINIUM BROMIDE\VILANTEROL TRIFENATATE
     Indication: CHRONIC OBSTRUCTIVE PULMONARY DISEASE
     Dosage: DAILY
     Route: 055
     Dates: start: 20170119
  4. VENTOLIN [Concomitant]
     Active Substance: ALBUTEROL SULFATE
     Indication: ASTHMA
     Route: 055
     Dates: start: 201701
  5. ANORO ELLIPTA [Suspect]
     Active Substance: UMECLIDINIUM BROMIDE\VILANTEROL TRIFENATATE
     Indication: EMPHYSEMA
     Dosage: DAILY
     Route: 055
     Dates: start: 20170119
  6. PULMICORT FLEXHALER [Suspect]
     Active Substance: BUDESONIDE
     Indication: CHRONIC OBSTRUCTIVE PULMONARY DISEASE
     Route: 055
     Dates: start: 201703
  7. ANORO ELLIPTA [Suspect]
     Active Substance: UMECLIDINIUM BROMIDE\VILANTEROL TRIFENATATE
     Indication: ASTHMA
     Dosage: DAILY
     Route: 055
     Dates: start: 20170119

REACTIONS (19)
  - Upper-airway cough syndrome [Unknown]
  - Cough [Unknown]
  - Dysphonia [Unknown]
  - Dry throat [Unknown]
  - Lower respiratory tract infection [Unknown]
  - Anxiety [Unknown]
  - Peripheral swelling [Unknown]
  - Blood sodium decreased [Unknown]
  - Oral candidiasis [Recovered/Resolved]
  - Nervousness [Unknown]
  - Productive cough [Unknown]
  - Bronchitis [Recovered/Resolved]
  - Palpitations [Not Recovered/Not Resolved]
  - Discomfort [Unknown]
  - Wheezing [Not Recovered/Not Resolved]
  - Intentional product misuse [Unknown]
  - Urinary tract infection [Unknown]
  - Dysgeusia [Unknown]
  - Nervousness [Not Recovered/Not Resolved]

NARRATIVE: CASE EVENT DATE: 2017
